FAERS Safety Report 6700154-8 (Version None)
Quarter: 2010Q2

REPORT INFORMATION
  Report Type: 
  Country: None (occurrence: None)
  Receive Date: 20100428
  Receipt Date: 20100416
  Transmission Date: 20101027
  Serious: Yes (Death, Other)
  Sender: FDA-Public Use
  Company Number: ES-SANOFI-AVENTIS-2010SA005154

PATIENT
  Age: 87 Year
  Sex: Female

DRUGS (6)
  1. FUROSEMIDE [Suspect]
     Route: 048
     Dates: start: 20091201, end: 20091204
  2. IBUPROFEN [Suspect]
     Route: 048
     Dates: start: 20091113, end: 20091204
  3. LIDALTRIN DIU [Suspect]
     Route: 048
     Dates: end: 20091204
  4. CALCIUM-D-SANDOZ [Concomitant]
     Indication: OSTEOPOROSIS
     Route: 048
     Dates: end: 20091204
  5. METFORMIN HCL [Concomitant]
     Route: 048
     Dates: end: 20091204
  6. ZALDIAR [Concomitant]
     Indication: PAIN
     Dates: start: 20091113, end: 20091204

REACTIONS (3)
  - CARDIAC FAILURE [None]
  - HYPONATRAEMIA [None]
  - RESPIRATORY FAILURE [None]
